FAERS Safety Report 5496375-5 (Version None)
Quarter: 2007Q4

REPORT INFORMATION
  Report Type: 
  Country: None (occurrence: None)
  Receive Date: 20071025
  Receipt Date: 20070402
  Transmission Date: 20080405
  Serious: No
  Sender: FDA-Public Use
  Company Number: A0645566A

PATIENT
  Age: 82 Year
  Sex: Female

DRUGS (12)
  1. ADVAIR DISKUS 100/50 [Suspect]
     Indication: BRONCHITIS
     Dosage: 1PUFF TWICE PER DAY
     Route: 055
  2. HYDROCHLOROTHIAZIDE [Concomitant]
  3. ECOTRIN [Concomitant]
  4. ASPIRIN [Concomitant]
  5. FOLGARD [Concomitant]
  6. DILANTIN [Concomitant]
  7. PLAVIX [Concomitant]
  8. PRILOSEC [Concomitant]
  9. COZAAR [Concomitant]
  10. IMDUR [Concomitant]
  11. ZOCOR [Concomitant]
  12. MULTI-VITAMIN [Concomitant]

REACTIONS (4)
  - COUGH [None]
  - DIZZINESS [None]
  - HEADACHE [None]
  - INCREASED UPPER AIRWAY SECRETION [None]
